FAERS Safety Report 22162355 (Version 1)
Quarter: 2023Q1

REPORT INFORMATION
  Report Type: Spontaneous
  Country: TR (occurrence: TR)
  Receive Date: 20230331
  Receipt Date: 20230331
  Transmission Date: 20230417
  Serious: Yes (Other)
  Sender: FDA-Public Use
  Company Number: None

PATIENT
  Age: 21 Year
  Sex: Female
  Weight: 65 kg

DRUGS (1)
  1. DIENOGEST\ESTRADIOL VALERATE [Suspect]
     Active Substance: DIENOGEST\ESTRADIOL VALERATE
     Indication: Menstruation irregular
     Dosage: 1 TABLET ONCE A DAY
     Route: 048
     Dates: start: 20230128, end: 20230225

REACTIONS (2)
  - Mouth haemorrhage [Recovered/Resolved]
  - Off label use [None]

NARRATIVE: CASE EVENT DATE: 20230128
